FAERS Safety Report 19270257 (Version 1)
Quarter: 2021Q2

REPORT INFORMATION
  Report Type: Spontaneous
  Country: US (occurrence: US)
  Receive Date: 20210518
  Receipt Date: 20210518
  Transmission Date: 20210717
  Serious: No
  Sender: FDA-Public Use
  Company Number: US-009507513-2105USA000834

PATIENT
  Age: 77 Year
  Sex: Male

DRUGS (1)
  1. INTRON A [Suspect]
     Active Substance: INTERFERON ALFA-2B
     Indication: OCULAR SURFACE SQUAMOUS NEOPLASIA
     Dosage: UNK
     Route: 061

REACTIONS (2)
  - Off label use [Unknown]
  - Incorrect route of product administration [Unknown]
